FAERS Safety Report 22635558 (Version 1)
Quarter: 2023Q2

REPORT INFORMATION
  Report Type: Spontaneous
  Country: DE (occurrence: DE)
  Receive Date: 20230623
  Receipt Date: 20230623
  Transmission Date: 20230722
  Serious: Yes (Hospitalization, Other)
  Sender: FDA-Public Use
  Company Number: DE-SAMSUNG BIOEPIS-SB-2023-12825

PATIENT
  Age: 68 Year
  Sex: Male
  Weight: 107 kg

DRUGS (15)
  1. PEMBROLIZUMAB [Suspect]
     Active Substance: PEMBROLIZUMAB
     Indication: HER2 positive gastric cancer
     Dosage: DOSE: 200 (UNSPECIFIED UNIT)
     Route: 042
     Dates: start: 20230424
  2. FLUOROURACIL [Suspect]
     Active Substance: FLUOROURACIL
     Indication: HER2 positive gastric cancer
     Dosage: 5950 MILLIGRAM
     Route: 042
     Dates: start: 20230425
  3. FLUOROURACIL [Suspect]
     Active Substance: FLUOROURACIL
     Route: 042
     Dates: start: 20230425
  4. FLUOROURACIL [Suspect]
     Active Substance: FLUOROURACIL
     Route: 042
     Dates: start: 20230425
  5. OXALIPLATIN [Suspect]
     Active Substance: OXALIPLATIN
     Indication: HER2 positive gastric cancer
     Dosage: 195 MILLIGRAM
     Route: 042
     Dates: start: 20230425
  6. OXALIPLATIN [Suspect]
     Active Substance: OXALIPLATIN
     Dosage: 190 MILLIGRAM
     Route: 042
     Dates: start: 20230424
  7. OXALIPLATIN [Suspect]
     Active Substance: OXALIPLATIN
     Dosage: 85 MILLIGRAM
     Route: 042
     Dates: start: 20230425
  8. ONTRUZANT [Suspect]
     Active Substance: TRASTUZUMAB-DTTB
     Indication: HER2 positive gastric cancer
     Dosage: 8 MILLIGRAM
     Route: 042
     Dates: start: 20230424
  9. ONTRUZANT [Suspect]
     Active Substance: TRASTUZUMAB-DTTB
     Dosage: 642 MILLIGRAM
     Route: 042
     Dates: start: 20230424
  10. ONTRUZANT [Suspect]
     Active Substance: TRASTUZUMAB-DTTB
     Dosage: 896 MILLIGRAM
     Route: 042
     Dates: start: 20230424
  11. DOCETAXEL [Suspect]
     Active Substance: DOCETAXEL
     Indication: HER2 positive gastric cancer
     Dosage: 112 MILLIGRAM
     Route: 042
     Dates: start: 20230424
  12. DOCETAXEL [Suspect]
     Active Substance: DOCETAXEL
     Dosage: 114 MILLIGRAM
     Route: 042
     Dates: start: 20230425
  13. DOCETAXEL [Suspect]
     Active Substance: DOCETAXEL
     Dosage: 50 MILLIGRAM
     Route: 042
     Dates: start: 20230425
  14. LEUCOVORIN [Suspect]
     Active Substance: LEUCOVORIN
     Indication: HER2 positive gastric cancer
     Dosage: 450 MILLIGRAM
     Route: 042
     Dates: start: 20230424
  15. LEUCOVORIN [Suspect]
     Active Substance: LEUCOVORIN
     Dosage: 200 MILLIGRAM
     Route: 042
     Dates: start: 20230425

REACTIONS (2)
  - Gastric stenosis [Recovered/Resolved]
  - Diarrhoea [Not Recovered/Not Resolved]

NARRATIVE: CASE EVENT DATE: 20230504
